FAERS Safety Report 9203761 (Version 2)
Quarter: 2013Q2

REPORT INFORMATION
  Report Type: Spontaneous
  Country: US (occurrence: US)
  Receive Date: 20130402
  Receipt Date: 20130418
  Transmission Date: 20140414
  Serious: Yes (Death)
  Sender: FDA-Public Use
  Company Number: US-BRISTOL-MYERS SQUIBB COMPANY-18714915

PATIENT
  Sex: 0

DRUGS (1)
  1. YERVOY [Suspect]
     Dosage: YERVOY 50MG/10ML,200MG/40ML,00003-2328-22?LOT 921046,EXP. 11/2014

REACTIONS (1)
  - Death [Fatal]
